FAERS Safety Report 17512080 (Version 1)
Quarter: 2020Q1

REPORT INFORMATION
  Report Type: Spontaneous
  Country: US (occurrence: US)
  Receive Date: 20200307
  Receipt Date: 20200307
  Transmission Date: 20200409
  Serious: No
  Sender: FDA-Public Use
  Company Number: US-TEVA-2020-US-1192827

PATIENT
  Age: 67 Year
  Sex: Female

DRUGS (4)
  1. MATZIM LA [Suspect]
     Active Substance: DILTIAZEM HYDROCHLORIDE
     Indication: BLOOD PRESSURE MEASUREMENT
     Dosage: EXTENDED-RELEASE TABLET
     Route: 065
     Dates: start: 201909
  2. VITAMIN C [Concomitant]
     Active Substance: ASCORBIC ACID
     Route: 065
  3. VITAMIN E [Concomitant]
     Active Substance: .ALPHA.-TOCOPHEROL
     Route: 065
  4. WOMEN^S MULTIVITAMIN [Concomitant]
     Route: 065

REACTIONS (5)
  - Breast discomfort [Not Recovered/Not Resolved]
  - Breast pain [Not Recovered/Not Resolved]
  - Palpitations [Unknown]
  - Breast tenderness [Not Recovered/Not Resolved]
  - Dizziness [Unknown]

NARRATIVE: CASE EVENT DATE: 201909
